FAERS Safety Report 23708730 (Version 1)
Quarter: 2024Q2

REPORT INFORMATION
  Report Type: Spontaneous
  Country: GB (occurrence: GB)
  Receive Date: 20240404
  Receipt Date: 20240404
  Transmission Date: 20240716
  Serious: Yes (Other)
  Sender: FDA-Public Use
  Company Number: GB-ELI_LILLY_AND_COMPANY-GB202403016411

PATIENT
  Sex: Male

DRUGS (2)
  1. CIALIS [Suspect]
     Active Substance: TADALAFIL
     Indication: Erectile dysfunction
     Dosage: 20 MG, OTHER (EVERY 48 HOURS)
     Route: 065
  2. CIALIS [Suspect]
     Active Substance: TADALAFIL
     Indication: Urinary retention

REACTIONS (2)
  - Neoplasm malignant [Unknown]
  - Wrong technique in product usage process [Unknown]
